FAERS Safety Report 15011842 (Version 1)
Quarter: 2018Q2

REPORT INFORMATION
  Report Type: Spontaneous
  Country: US (occurrence: US)
  Receive Date: 20180614
  Receipt Date: 20180614
  Transmission Date: 20180711
  Serious: Yes (Hospitalization)
  Sender: FDA-Public Use
  Company Number: US-ALLERGAN-1830626US

PATIENT
  Age: 72 Year
  Sex: Male

DRUGS (4)
  1. CEFTAROLINE FOSAMIL UNK [Suspect]
     Active Substance: CEFTAROLINE FOSAMIL
     Dosage: UNK
     Route: 042
  2. CEFTAROLINE FOSAMIL UNK [Suspect]
     Active Substance: CEFTAROLINE FOSAMIL
     Indication: ENDOCARDITIS
     Dosage: UNK
     Route: 042
  3. DAPTOMYCIN. [Suspect]
     Active Substance: DAPTOMYCIN
     Indication: ENDOCARDITIS
     Dosage: UNK
     Route: 042
  4. DAPTOMYCIN. [Suspect]
     Active Substance: DAPTOMYCIN
     Dosage: UNK
     Route: 042

REACTIONS (12)
  - Off label use [Unknown]
  - Eosinophil count increased [Unknown]
  - Chills [Unknown]
  - Malaise [Unknown]
  - White blood cell count increased [Unknown]
  - Procalcitonin increased [Unknown]
  - Night sweats [Recovering/Resolving]
  - Dyspnoea [Recovering/Resolving]
  - Lung infiltration [Unknown]
  - Eosinophilic pneumonia [Recovering/Resolving]
  - Pyrexia [Unknown]
  - Hypotension [Unknown]
